FAERS Safety Report 9475667 (Version 1)
Quarter: 2013Q3

REPORT INFORMATION
  Report Type: Spontaneous
  Country: US (occurrence: None)
  Receive Date: 20130822
  Receipt Date: 20130822
  Transmission Date: 20140515
  Serious: No
  Sender: FDA-Public Use
  Company Number: None

PATIENT
  Age: 54 Year
  Sex: Female
  Weight: 72.7 kg

DRUGS (1)
  1. ALFA INTERFERON 2B [Suspect]
     Dates: end: 20130226

REACTIONS (1)
  - Neutrophil count decreased [None]
